FAERS Safety Report 11832636 (Version 2)
Quarter: 2016Q1

REPORT INFORMATION
  Report Type: Report from Study
  Country: FR (occurrence: FR)
  Receive Date: 20151214
  Receipt Date: 20160103
  Transmission Date: 20160525
  Serious: Yes (Death, Hospitalization, Other)
  Sender: FDA-Public Use
  Company Number: PHHY2015FR155256

PATIENT
  Age: 73 Year
  Sex: Male
  Weight: 93 kg

DRUGS (4)
  1. INEXIUM//ESOMEPRAZOLE MAGNESIUM [Concomitant]
     Active Substance: ESOMEPRAZOLE MAGNESIUM
     Indication: ABDOMINAL PAIN UPPER
     Route: 065
     Dates: start: 201501
  2. DAFALGAN [Concomitant]
     Active Substance: ACETAMINOPHEN
     Indication: BACK PAIN
     Route: 065
     Dates: start: 201505
  3. DUROGESIC [Concomitant]
     Active Substance: FENTANYL
     Indication: BACK PAIN
     Route: 065
     Dates: start: 201503
  4. EVEROLIMUS [Suspect]
     Active Substance: EVEROLIMUS
     Indication: RENAL CELL CARCINOMA
     Dosage: 10 MG, QD
     Route: 065
     Dates: start: 201507

REACTIONS (6)
  - Small intestinal obstruction [Recovered/Resolved]
  - Malignant neoplasm progression [Fatal]
  - Lumbar vertebral fracture [Recovered/Resolved]
  - Pulmonary sepsis [Fatal]
  - Abdominal adhesions [Recovered/Resolved]
  - Complicated fracture [Unknown]

NARRATIVE: CASE EVENT DATE: 20150702
